FAERS Safety Report 6934468-3 (Version None)
Quarter: 2010Q3

REPORT INFORMATION
  Report Type: 
  Country: None (occurrence: None)
  Receive Date: 20100820
  Receipt Date: 20100806
  Transmission Date: 20110219
  Serious: Yes (Other)
  Sender: FDA-Public Use
  Company Number: JP-ALLERGAN-1010545US

PATIENT
  Age: 13 Year
  Sex: Female

DRUGS (4)
  1. ALESION TABLET [Suspect]
     Indication: DERMATITIS ATOPIC
     Dosage: 20 MG, QD
     Route: 048
     Dates: end: 20100707
  2. CLARITIN REDITABS [Suspect]
     Indication: DERMATITIS ATOPIC
     Dosage: UNK
     Route: 048
     Dates: end: 20100707
  3. KIPRES [Suspect]
     Indication: DERMATITIS ATOPIC
     Dosage: UNK
     Route: 048
     Dates: end: 20100707
  4. SAIBOKU-TO [Suspect]
     Indication: DERMATITIS ATOPIC
     Dosage: UNK
     Route: 048
     Dates: end: 20100707

REACTIONS (2)
  - DRUG HYPERSENSITIVITY [None]
  - PYURIA [None]
